FAERS Safety Report 4501863-1 (Version None)
Quarter: 2004Q4

REPORT INFORMATION
  Report Type: 
  Country: None (occurrence: None)
  Receive Date: 20041116
  Receipt Date: 20041102
  Transmission Date: 20050328
  Serious: Yes (Hospitalization)
  Sender: FDA-Public Use
  Company Number: PHRM2004FR03286

PATIENT
  Age: 93 Year
  Sex: Male

DRUGS (7)
  1. BRIAZIDE [Suspect]
     Indication: ESSENTIAL HYPERTENSION
     Dosage: 1 DF, QD
     Route: 048
     Dates: end: 20040708
  2. DI-ANTALVIC [Concomitant]
     Indication: PAIN IN EXTREMITY
     Dosage: UNK, UNK
     Route: 048
     Dates: start: 20031115
  3. HEXAQUINE [Concomitant]
     Indication: MUSCLE DISORDER
     Route: 048
     Dates: start: 20031115
  4. VASTAREL ^BIOPHARMA^ [Concomitant]
     Indication: ANGINA PECTORIS
     Route: 048
  5. PERMIXON [Concomitant]
     Indication: BENIGN PROSTATIC HYPERPLASIA
     Route: 048
  6. SERMION [Concomitant]
     Route: 048
  7. STILNOX [Concomitant]
     Route: 048

REACTIONS (3)
  - ECZEMA [None]
  - PRURITUS [None]
  - TOXIC SKIN ERUPTION [None]
